FAERS Safety Report 13772564 (Version 1)
Quarter: 2017Q3

REPORT INFORMATION
  Report Type: Spontaneous
  Country: ES (occurrence: ES)
  Receive Date: 20170720
  Receipt Date: 20170720
  Transmission Date: 20171127
  Serious: Yes (Hospitalization)
  Sender: FDA-Public Use
  Company Number: ES-PURDUE-GBR-2017-0046914

PATIENT
  Age: 83 Year
  Sex: Male

DRUGS (1)
  1. SEVREDOL [Suspect]
     Active Substance: MORPHINE
     Indication: PRODUCT USED FOR UNKNOWN INDICATION
     Dosage: 20 MG, TID (1-1-1) [20MG STRENGTH]
     Route: 048
     Dates: start: 20170316, end: 20170316

REACTIONS (5)
  - Anuria [Unknown]
  - Miosis [Unknown]
  - Incorrect dosage administered [Recovered/Resolved]
  - Respiration abnormal [Unknown]
  - Apnoea [Unknown]

NARRATIVE: CASE EVENT DATE: 20170316
